FAERS Safety Report 6063038-7 (Version None)
Quarter: 2009Q1

REPORT INFORMATION
  Report Type: 
  Country: None (occurrence: None)
  Receive Date: 20090203
  Receipt Date: 20090126
  Transmission Date: 20090719
  Serious: Yes (Hospitalization)
  Sender: FDA-Public Use
  Company Number: JP-MERCK-0810USA04190

PATIENT
  Age: 77 Year
  Sex: Female

DRUGS (9)
  1. FOSAMAX [Suspect]
     Indication: OSTEOPOROSIS
     Route: 048
     Dates: start: 20080919, end: 20081219
  2. URSO 250 [Concomitant]
     Indication: AUTOIMMUNE HEPATITIS
     Route: 048
     Dates: start: 20080829
  3. PREDNISOLONE [Suspect]
     Indication: AUTOIMMUNE HEPATITIS
     Route: 048
     Dates: start: 20080919
  4. PARIET [Concomitant]
     Route: 048
     Dates: start: 20080829
  5. LIVACT [Concomitant]
     Indication: AUTOIMMUNE HEPATITIS
     Route: 048
     Dates: start: 20080829
  6. GASMOTIN [Concomitant]
     Indication: NAUSEA
     Route: 048
     Dates: start: 20080908
  7. LASIX [Concomitant]
     Indication: ASCITES
     Route: 048
     Dates: start: 20080916
  8. LASIX [Concomitant]
     Indication: OEDEMA
     Route: 048
     Dates: start: 20080916
  9. PL-GRANULES [Suspect]
     Indication: NASOPHARYNGITIS
     Route: 048
     Dates: start: 20081218, end: 20081219

REACTIONS (2)
  - HAEMATEMESIS [None]
  - PLATELET COUNT DECREASED [None]
